FAERS Safety Report 6450508-2 (Version None)
Quarter: 2009Q4

REPORT INFORMATION
  Report Type: 
  Country: None (occurrence: None)
  Receive Date: 20091123
  Receipt Date: 20091110
  Transmission Date: 20100525
  Serious: Yes (Other)
  Sender: FDA-Public Use
  Company Number: PHEH2009US13497

PATIENT
  Sex: Female
  Weight: 62.132 kg

DRUGS (2)
  1. FORADIL [Suspect]
     Indication: CHRONIC OBSTRUCTIVE PULMONARY DISEASE
     Dosage: 12 UG, UNK
     Dates: start: 20091001, end: 20091101
  2. COMBIVENT                               /GFR/ [Concomitant]
     Indication: CHRONIC OBSTRUCTIVE PULMONARY DISEASE
     Dosage: 2 PUFFS THREE TIMES DAILY
     Dates: start: 20071201, end: 20091101

REACTIONS (6)
  - INJURY [None]
  - MEDICAL DEVICE COMPLICATION [None]
  - MUSCLE INJURY [None]
  - NERVE INJURY [None]
  - PRODUCT QUALITY ISSUE [None]
  - WRONG TECHNIQUE IN DRUG USAGE PROCESS [None]
